FAERS Safety Report 5092291-1 (Version None)
Quarter: 2006Q3

REPORT INFORMATION
  Report Type: 
  Country: None (occurrence: None)
  Receive Date: 20060727
  Receipt Date: 20060512
  Transmission Date: 20061208
  Serious: Yes (Hospitalization)
  Sender: FDA-Public Use
  Company Number: 2006063666

PATIENT
  Age: 35 Year
  Sex: Male

DRUGS (1)
  1. LYRICA [Suspect]
     Indication: NEUROPATHY PERIPHERAL
     Dosage: UNK (100 MG, 3 IN 1 D), UNKNOWN

REACTIONS (1)
  - RHABDOMYOLYSIS [None]
